FAERS Safety Report 9496786 (Version 2)
Quarter: 2013Q4

REPORT INFORMATION
  Report Type: Report from Study
  Country: DE (occurrence: DE)
  Receive Date: 20130904
  Receipt Date: 20131112
  Transmission Date: 20140711
  Serious: Yes (Hospitalization)
  Sender: FDA-Public Use
  Company Number: DE-UCBSA-097000

PATIENT
  Sex: 0

DRUGS (2)
  1. LACOSAMIDE [Suspect]
     Indication: STATUS EPILEPTICUS
     Dosage: MEDIAN BOLUS 400 MG
     Route: 040
  2. LEVETIRACETAM [Concomitant]
     Indication: STATUS EPILEPTICUS

REACTIONS (1)
  - Intensive care [Unknown]
